FAERS Safety Report 20533131 (Version 2)
Quarter: 2022Q1

REPORT INFORMATION
  Report Type: Spontaneous
  Country: US (occurrence: US)
  Receive Date: 20220301
  Receipt Date: 20220314
  Transmission Date: 20220423
  Serious: No
  Sender: FDA-Public Use
  Company Number: US-PINNACLE BIOLOGICS INC-2022-CLI-000003

PATIENT
  Age: 77 Year
  Sex: Male

DRUGS (1)
  1. PHOTOFRIN [Suspect]
     Active Substance: PORFIMER SODIUM
     Indication: Cholangiocarcinoma

REACTIONS (2)
  - Swelling face [Recovered/Resolved]
  - Off label use [Unknown]
